FAERS Safety Report 6567416-9 (Version None)
Quarter: 2010Q1

REPORT INFORMATION
  Report Type: 
  Country: None (occurrence: None)
  Receive Date: 20100202
  Receipt Date: 20100126
  Transmission Date: 20100710
  Serious: Yes (Hospitalization)
  Sender: FDA-Public Use
  Company Number: US-BAYER-201011122BCC

PATIENT
  Age: 67 Year
  Sex: Female
  Weight: 84 kg

DRUGS (3)
  1. ALEVE [Suspect]
     Indication: EPICONDYLITIS
     Dosage: TOTAL DAILY DOSE: 220 MG  UNIT DOSE: 220 MG
     Route: 048
     Dates: start: 20100101
  2. CALTRATE [Concomitant]
     Route: 065
  3. CENTRUM [Concomitant]
     Route: 065

REACTIONS (5)
  - BLOOD PRESSURE INCREASED [None]
  - CARDIAC FLUTTER [None]
  - DYSPEPSIA [None]
  - LIP SWELLING [None]
  - PALPITATIONS [None]
